FAERS Safety Report 9435773 (Version 1)
Quarter: 2013Q3

REPORT INFORMATION
  Report Type: Spontaneous
  Country: US (occurrence: None)
  Receive Date: 20130801
  Receipt Date: 20130801
  Transmission Date: 20140515
  Serious: Yes (Other)
  Sender: FDA-Public Use
  Company Number: None

PATIENT
  Age: 75 None
  Sex: Female

DRUGS (1)
  1. TIKOSYN [Suspect]
     Indication: ATRIAL FIBRILLATION
     Route: 048
     Dates: start: 20110728, end: 20130630

REACTIONS (2)
  - Blood calcium abnormal [None]
  - Renal impairment [None]
